FAERS Safety Report 9262477 (Version 2)
Quarter: 2013Q2

REPORT INFORMATION
  Report Type: Spontaneous
  Country: DE (occurrence: DE)
  Receive Date: 20130430
  Receipt Date: 20130618
  Transmission Date: 20140414
  Serious: Yes (Hospitalization)
  Sender: FDA-Public Use
  Company Number: DE-ELI_LILLY_AND_COMPANY-DE201304005136

PATIENT
  Age: 60 Year
  Sex: Female

DRUGS (3)
  1. ZYPADHERA [Suspect]
     Indication: BIPOLAR I DISORDER
     Dosage: 405 MG, MONTHLY (1/M)
     Route: 030
     Dates: start: 201302, end: 20130405
  2. CALCIUM D3 [Concomitant]
     Dosage: 1X1
  3. ALENDRONIC ACID [Concomitant]
     Dosage: 75 1X MONDAYS

REACTIONS (6)
  - Dyspnoea [Recovered/Resolved]
  - Tachycardia [Recovered/Resolved]
  - Hypotension [Recovered/Resolved]
  - Disturbance in attention [Recovered/Resolved]
  - Rash [Recovered/Resolved]
  - Somnolence [Recovered/Resolved]
